FAERS Safety Report 5581038-8 (Version None)
Quarter: 2007Q4

REPORT INFORMATION
  Report Type: 
  Country: None (occurrence: None)
  Receive Date: 20071227
  Receipt Date: 20071214
  Transmission Date: 20080405
  Serious: Yes (Hospitalization)
  Sender: FDA-Public Use
  Company Number: GXKR2007ES10735

PATIENT
  Age: 61 Year
  Sex: Female

DRUGS (3)
  1. METFORMIN HCL [Suspect]
     Indication: TYPE 2 DIABETES MELLITUS
     Dosage: 850 MG, BID
  2. IRBESARTAN [Concomitant]
  3. AMLODIPINE [Concomitant]

REACTIONS (10)
  - BLOOD PRESSURE DECREASED [None]
  - BRADYPHRENIA [None]
  - DEHYDRATION [None]
  - DIARRHOEA [None]
  - LACTIC ACIDOSIS [None]
  - MENTAL DISORDER [None]
  - OVERDOSE [None]
  - PANCREATITIS ACUTE [None]
  - TACHYPNOEA [None]
  - UNRESPONSIVE TO STIMULI [None]
